FAERS Safety Report 24084867 (Version 1)
Quarter: 2024Q3

REPORT INFORMATION
  Report Type: Report from Study
  Country: IN (occurrence: IN)
  Receive Date: 20240712
  Receipt Date: 20240712
  Transmission Date: 20241016
  Serious: Yes (Other)
  Sender: SANOFI AVENTIS
  Company Number: IN-SA-2024SA200301

PATIENT
  Sex: Female

DRUGS (3)
  1. DOCETAXEL [Suspect]
     Active Substance: DOCETAXEL\DOCETAXEL ANHYDROUS
     Indication: HER2 positive breast cancer
     Dosage: 75 MG/M2, QCY, OVER 60 ? 5 MIN
     Route: 042
  2. HERCEPTIN [Suspect]
     Active Substance: TRASTUZUMAB
     Indication: HER2 positive breast cancer
     Dosage: 8 MG/KG, QCY LOADING DOSE ON DAY 1-CYCLE 1 OVER 90 MINUTES
     Route: 042
  3. HERCEPTIN [Suspect]
     Active Substance: TRASTUZUMAB
     Dosage: 6 MG/KG, QCY ON DAY 1-CYCLE 2-8 OVER 30-90 MINUTES DEPENDING ON TOLERABILITY
     Route: 042

REACTIONS (1)
  - Cardiac dysfunction [Unknown]
